FAERS Safety Report 25007714 (Version 1)
Quarter: 2025Q1

REPORT INFORMATION
  Report Type: Spontaneous
  Country: GB (occurrence: GB)
  Receive Date: 20250225
  Receipt Date: 20250225
  Transmission Date: 20250408
  Serious: Yes (Life-Threatening, Hospitalization, Other)
  Sender: EXELIXIS
  Company Number: GB-IPSEN Group, Research and Development-2025-03926

PATIENT
  Age: 64 Year
  Sex: Male
  Weight: 73 kg

DRUGS (4)
  1. CABOMETYX [Suspect]
     Active Substance: CABOZANTINIB S-MALATE
     Indication: Adverse drug reaction
     Dosage: 40MG DAILY
     Route: 065
     Dates: start: 20250131, end: 20250213
  2. APIXABAN [Concomitant]
     Active Substance: APIXABAN
     Indication: Adverse drug reaction
     Route: 065
  3. BECLOMETHASONE\FORMOTEROL [Concomitant]
     Active Substance: BECLOMETHASONE\FORMOTEROL
  4. DENOSUMAB [Concomitant]
     Active Substance: DENOSUMAB

REACTIONS (4)
  - Cardiac arrest [Recovered/Resolved with Sequelae]
  - Ventricular fibrillation [Recovered/Resolved with Sequelae]
  - Urticaria [Unknown]
  - Skin burning sensation [Unknown]

NARRATIVE: CASE EVENT DATE: 20250216
